FAERS Safety Report 21112096 (Version 1)
Quarter: 2022Q3

REPORT INFORMATION
  Report Type: Report from Study
  Country: IT (occurrence: IT)
  Receive Date: 20220721
  Receipt Date: 20220721
  Transmission Date: 20221027
  Serious: Yes (Hospitalization)
  Sender: FDA-Public Use
  Company Number: None

PATIENT
  Age: 25 Year
  Sex: Female

DRUGS (6)
  1. LYRICA [Suspect]
     Active Substance: PREGABALIN
     Dosage: 1650 MG (75 MG, 22 CAPSULES)
     Route: 048
     Dates: start: 20220627, end: 20220627
  2. TAVOR (LORAZEPAM) [Suspect]
     Active Substance: LORAZEPAM
     Dosage: 97.5 MG (2.5 MG, 39 TABLETS)
     Route: 048
     Dates: start: 20220627, end: 20220627
  3. VENLAFAXINE HCL [Suspect]
     Active Substance: VENLAFAXINE HYDROCHLORIDE
     Dosage: 825 MG (75 MG, 11 CAPSULES)
     Route: 048
     Dates: start: 20220627, end: 20220627
  4. TEGRETOL [Suspect]
     Active Substance: CARBAMAZEPINE
     Dosage: 4600 MG (200 MG, 23 TABLETS)
     Route: 048
     Dates: start: 20220627, end: 20220627
  5. ARIPIPRAZOLE [Suspect]
     Active Substance: ARIPIPRAZOLE
     Dosage: 20 MG (10 MG, 2 TABLETS)
     Route: 048
     Dates: start: 20220627, end: 20220627
  6. TRAZODONE HYDROCHLORIDE [Suspect]
     Active Substance: TRAZODONE HYDROCHLORIDE
     Dosage: 400 MG (100 MG, 4 TABLETS)
     Route: 048
     Dates: start: 20220627, end: 20220627

REACTIONS (3)
  - Toxicity to various agents [Recovering/Resolving]
  - Sopor [Recovering/Resolving]
  - Drug abuse [Unknown]

NARRATIVE: CASE EVENT DATE: 20220628
